FAERS Safety Report 10456085 (Version 1)
Quarter: 2014Q3

REPORT INFORMATION
  Report Type: Spontaneous
  Country: US (occurrence: US)
  Receive Date: 20140916
  Receipt Date: 20140916
  Transmission Date: 20150326
  Serious: Yes (Other)
  Sender: FDA-Public Use
  Company Number: US-SA-2014SA124970

PATIENT
  Sex: Female

DRUGS (1)
  1. DDAVP [Suspect]
     Active Substance: DESMOPRESSIN ACETATE
     Route: 048

REACTIONS (4)
  - Pruritus [Unknown]
  - Swelling face [Unknown]
  - Angioedema [Unknown]
  - Dyspnoea [Unknown]
